FAERS Safety Report 17729354 (Version 1)
Quarter: 2020Q2

REPORT INFORMATION
  Report Type: Spontaneous
  Country: DE (occurrence: DE)
  Receive Date: 20200430
  Receipt Date: 20200430
  Transmission Date: 20200714
  Serious: Yes (Congenital Anomaly, Other)
  Sender: FDA-Public Use
  Company Number: DE-ALLERGAN-2017328US

PATIENT
  Sex: Male
  Weight: 3.52 kg

DRUGS (2)
  1. ESCITALOPRAM OXALATE - BP [Suspect]
     Active Substance: ESCITALOPRAM OXALATE
     Indication: EXPOSURE DURING PREGNANCY
     Dosage: 10 MG, QD
     Route: 064
     Dates: start: 20160113, end: 20161007
  2. UNACID [Concomitant]
     Indication: EXPOSURE DURING PREGNANCY
     Route: 064

REACTIONS (4)
  - Cataract congenital [Recovered/Resolved with Sequelae]
  - Respiratory disorder neonatal [Recovered/Resolved]
  - Atrial septal defect [Not Recovered/Not Resolved]
  - Pregnancy [Unknown]

NARRATIVE: CASE EVENT DATE: 20161007
